FAERS Safety Report 18117080 (Version 1)
Quarter: 2020Q3

REPORT INFORMATION
  Report Type: Report from Study
  Country: GB (occurrence: GB)
  Receive Date: 20200805
  Receipt Date: 20200805
  Transmission Date: 20201103
  Serious: Yes (Hospitalization)
  Sender: FDA-Public Use
  Company Number: NVSC2020GB212092

PATIENT
  Sex: Female

DRUGS (1)
  1. HYRIMOZ [Suspect]
     Active Substance: ADALIMUMAB-ADAZ
     Indication: PRODUCT USED FOR UNKNOWN INDICATION
     Dosage: UNK
     Route: 065

REACTIONS (14)
  - Pain of skin [Unknown]
  - Feeling of body temperature change [Unknown]
  - Fatigue [Unknown]
  - Palpitations [Unknown]
  - Night sweats [Unknown]
  - Tinnitus [Unknown]
  - Temperature regulation disorder [Unknown]
  - Psoriasis [Unknown]
  - Arthralgia [Unknown]
  - Vomiting [Recovered/Resolved]
  - Skin burning sensation [Unknown]
  - Lacrimation increased [Unknown]
  - Decreased appetite [Recovered/Resolved]
  - Vision blurred [Unknown]

NARRATIVE: CASE EVENT DATE: 20190616
